FAERS Safety Report 15507128 (Version 1)
Quarter: 2018Q4

REPORT INFORMATION
  Report Type: Report from Study
  Country: DE (occurrence: DE)
  Receive Date: 20181016
  Receipt Date: 20181016
  Transmission Date: 20190205
  Serious: Yes (Hospitalization)
  Sender: FDA-Public Use
  Company Number: DE-BAYER-2018-191159

PATIENT
  Age: 74 Year
  Sex: Male
  Weight: 75 kg

DRUGS (16)
  1. BLINDED RIVAROXABAN [Suspect]
     Active Substance: RIVAROXABAN
     Indication: PERIPHERAL ARTERIAL OCCLUSIVE DISEASE
  2. BLINDED RIVAROXABAN [Suspect]
     Active Substance: RIVAROXABAN
     Indication: PERIPHERAL REVASCULARISATION
  3. BLINDED RIVAROXABAN [Suspect]
     Active Substance: RIVAROXABAN
     Indication: THROMBOSIS PROPHYLAXIS
     Dosage: 2.5 MG, BID
     Route: 048
     Dates: start: 20170316, end: 20170318
  4. METAMIZOL [Concomitant]
     Active Substance: METAMIZOLE SODIUM
     Indication: PAIN PROPHYLAXIS
     Dosage: 500 MG, PRN
     Route: 048
     Dates: start: 20170318
  5. ACETYLSALICYLIC ACID({=100 MG) [Suspect]
     Active Substance: ASPIRIN
     Indication: PERIPHERAL REVASCULARISATION
  6. METOPROLOL. [Concomitant]
     Active Substance: METOPROLOL
     Indication: HYPERTENSION
     Dosage: 95 MG, QD
     Route: 048
     Dates: start: 2001
  7. LEVOTHYROXIN [Concomitant]
     Active Substance: LEVOTHYROXINE
     Indication: HYPOTHYROIDISM
     Dosage: 100 ?G, QD
     Route: 048
     Dates: start: 2001
  8. ACETYLSALICYLIC ACID({=100 MG) [Suspect]
     Active Substance: ASPIRIN
     Indication: THROMBOSIS PROPHYLAXIS
     Dosage: 100 MG, QD
     Route: 048
     Dates: start: 20170316, end: 20170317
  9. ACETYLSALICYLIC ACID({=100 MG) [Suspect]
     Active Substance: ASPIRIN
     Indication: PERIPHERAL ARTERIAL OCCLUSIVE DISEASE
  10. PANTOPRAZOLE [Concomitant]
     Active Substance: PANTOPRAZOLE
     Indication: PROPHYLAXIS
     Dosage: 40 MG, BID
     Route: 048
     Dates: start: 20170318
  11. FEBUXOSTAT. [Concomitant]
     Active Substance: FEBUXOSTAT
     Indication: HYPERURICAEMIA
     Dosage: 80 MG, QD
     Route: 048
     Dates: start: 2015
  12. RIFAXIMIN. [Concomitant]
     Active Substance: RIFAXIMIN
     Indication: HEPATIC CIRRHOSIS
     Dosage: 550 MG, BID
     Route: 048
     Dates: start: 2014
  13. ATORVASTATIN [Concomitant]
     Active Substance: ATORVASTATIN
     Indication: HYPERLIPIDAEMIA
     Dosage: 10 MG, QD
     Route: 048
     Dates: start: 2008
  14. TORASEMID [Concomitant]
     Active Substance: TORSEMIDE
     Indication: HYPERTENSION
     Dosage: 15 MG, QD
     Route: 048
     Dates: start: 20170318
  15. ACETYLSALICYLIC ACID [Concomitant]
     Active Substance: ASPIRIN
     Indication: THROMBOSIS PROPHYLAXIS
     Dosage: 100 MG, QD
     Route: 048
     Dates: start: 20170318
  16. VALSARTAN. [Concomitant]
     Active Substance: VALSARTAN
     Indication: HYPERTENSION
     Dosage: 80 MG, QD
     Route: 048
     Dates: start: 2001

REACTIONS (1)
  - Vascular compression [Recovered/Resolved]

NARRATIVE: CASE EVENT DATE: 20170318
